FAERS Safety Report 20828046 (Version 1)
Quarter: 2022Q2

REPORT INFORMATION
  Report Type: Spontaneous
  Country: US (occurrence: US)
  Receive Date: 20220513
  Receipt Date: 20220513
  Transmission Date: 20220720
  Serious: No
  Sender: FDA-Public Use
  Company Number: US-SANOFI-01089065

PATIENT
  Age: 5 Year
  Sex: Male

DRUGS (4)
  1. ALPROLIX [Suspect]
     Active Substance: EFTRENONACOG ALFA
     Indication: Haemophilia
     Dosage: 1000 IU, QW
     Dates: start: 2021
  2. ALPROLIX [Suspect]
     Active Substance: EFTRENONACOG ALFA
     Indication: Haemophilia
     Dosage: 1000 IU, QW
     Dates: start: 2021
  3. ALPROLIX [Suspect]
     Active Substance: EFTRENONACOG ALFA
     Dosage: 1500 IU (80 UNITS/KG)
     Dates: start: 20220502
  4. ALPROLIX [Suspect]
     Active Substance: EFTRENONACOG ALFA
     Dosage: 1500 IU (80 UNITS/KG)
     Dates: start: 20220502

REACTIONS (3)
  - Coagulation factor IX level decreased [Unknown]
  - Drug effect less than expected [Unknown]
  - Therapeutic response shortened [Unknown]

NARRATIVE: CASE EVENT DATE: 20220502
